FAERS Safety Report 5658834-1 (Version None)
Quarter: 2008Q1

REPORT INFORMATION
  Report Type: 
  Country: None (occurrence: None)
  Receive Date: 20080310
  Receipt Date: 20070511
  Transmission Date: 20080703
  Serious: Yes (Other)
  Sender: FDA-Public Use
  Company Number: US-BAYER-200711269BCC

PATIENT
  Age: 83 Year
  Sex: Female
  Weight: 60 kg

DRUGS (7)
  1. ALEVE [Suspect]
     Indication: CONTUSION
     Dosage: UNIT DOSE: 220 MG
     Route: 048
     Dates: start: 20070422
  2. ALEVE [Suspect]
     Dosage: TOTAL DAILY DOSE: 220 MG  UNIT DOSE: 220 MG
     Route: 048
     Dates: start: 20070423
  3. QUINAPRIL HCL [Concomitant]
  4. LIPITOR [Concomitant]
  5. ACTONEL [Concomitant]
  6. CALCIUM [Concomitant]
  7. MULTIPLE VITAMIN [Concomitant]

REACTIONS (2)
  - FAECES DISCOLOURED [None]
  - HAEMATOCHEZIA [None]
